FAERS Safety Report 15626084 (Version 1)
Quarter: 2018Q4

REPORT INFORMATION
  Report Type: Spontaneous
  Country: US (occurrence: US)
  Receive Date: 20181116
  Receipt Date: 20181116
  Transmission Date: 20190205
  Serious: No
  Sender: FDA-Public Use
  Company Number: None

PATIENT
  Age: 59 Year
  Sex: Female

DRUGS (4)
  1. CLEAR EYES FOR DRY EYES [Concomitant]
     Indication: DRY EYE
     Dosage: ?          QUANTITY:2 DROP(S);?
     Route: 047
     Dates: end: 20181115
  2. NATURE-THROID [Concomitant]
     Active Substance: THYROID, PORCINE
  3. XALATAN [Suspect]
     Active Substance: LATANOPROST
     Indication: ANGLE CLOSURE GLAUCOMA
     Dosage: ?          QUANTITY:2 DROP(S);?
     Route: 047
     Dates: end: 20181113
  4. LATANOPROST. [Concomitant]
     Active Substance: LATANOPROST

REACTIONS (4)
  - Influenza like illness [None]
  - Vertigo [None]
  - Fall [None]
  - Disorientation [None]

NARRATIVE: CASE EVENT DATE: 20181113
